FAERS Safety Report 6422126-3 (Version None)
Quarter: 2009Q4

REPORT INFORMATION
  Report Type: 
  Country: None (occurrence: None)
  Receive Date: 20091030
  Receipt Date: 20091019
  Transmission Date: 20100525
  Serious: Yes (Other)
  Sender: FDA-Public Use
  Company Number: US-PFIZER INC-2009287126

PATIENT
  Sex: Male

DRUGS (2)
  1. CHANTIX [Suspect]
     Indication: SMOKING CESSATION THERAPY
     Dosage: FREQUENCY: 2X/DAY,
     Dates: start: 20091001
  2. EFFEXOR XR [Concomitant]

REACTIONS (2)
  - ANAPHYLACTIC REACTION [None]
  - ANGIOEDEMA [None]
